FAERS Safety Report 21234478 (Version 5)
Quarter: 2022Q4

REPORT INFORMATION
  Report Type: Report from Study
  Country: US (occurrence: US)
  Receive Date: 20220820
  Receipt Date: 20221106
  Transmission Date: 20230112
  Serious: Yes (Hospitalization, Other)
  Sender: FDA-Public Use
  Company Number: US-BRISTOL-MYERS SQUIBB COMPANY-2022-089474

PATIENT
  Age: 58 Year
  Sex: Female
  Weight: 227 kg

DRUGS (8)
  1. ORENCIA [Suspect]
     Active Substance: ABATACEPT
     Indication: Rheumatoid arthritis
     Route: 065
  2. ORENCIA [Suspect]
     Active Substance: ABATACEPT
     Route: 058
     Dates: start: 20220411
  3. ORENCIA [Suspect]
     Active Substance: ABATACEPT
     Dosage: 125 MG/ML
     Route: 058
  4. LISINOPRIL [Concomitant]
     Active Substance: LISINOPRIL
  5. CHLORTHALIDONE [Concomitant]
     Active Substance: CHLORTHALIDONE
  6. CYMBALTA [Concomitant]
     Active Substance: DULOXETINE HYDROCHLORIDE
     Indication: Neuropathy peripheral
  7. MIRAPEX [Concomitant]
     Active Substance: PRAMIPEXOLE DIHYDROCHLORIDE
     Indication: Restless legs syndrome
  8. POTASSIUM K 20 [Concomitant]

REACTIONS (5)
  - Arthropathy [Unknown]
  - Staphylococcal infection [Unknown]
  - Sinusitis [Unknown]
  - Product leakage [Unknown]
  - Accidental underdose [Unknown]

NARRATIVE: CASE EVENT DATE: 20220608
